FAERS Safety Report 19899433 (Version 1)
Quarter: 2021Q3

REPORT INFORMATION
  Report Type: Spontaneous
  Country: US (occurrence: US)
  Receive Date: 20210930
  Receipt Date: 20210930
  Transmission Date: 20211014
  Serious: Yes (Death, Hospitalization)
  Sender: FDA-Public Use
  Company Number: US-JNJFOC-20210936025

PATIENT
  Age: 19 Year
  Sex: Female
  Weight: 40 kg

DRUGS (2)
  1. TYLENOL PM [Suspect]
     Active Substance: ACETAMINOPHEN\DIPHENHYDRAMINE
     Indication: SUICIDE ATTEMPT
     Dosage: SINGLE TOTAL DOSE: 2 HAND FULL AT 23:00
     Route: 048
     Dates: start: 20010419, end: 20010419
  2. CEFTRIAXONE. [Suspect]
     Active Substance: CEFTRIAXONE
     Indication: PRODUCT USED FOR UNKNOWN INDICATION
     Route: 065
     Dates: start: 20010419, end: 20010421

REACTIONS (21)
  - Monocyte percentage decreased [Fatal]
  - Heart rate increased [Fatal]
  - Haemoglobin decreased [Fatal]
  - Blood glucose increased [Fatal]
  - Neutrophil percentage increased [Fatal]
  - Blood phosphorus decreased [Fatal]
  - Acute hepatic failure [Fatal]
  - Brain herniation [Fatal]
  - Respiratory rate increased [Fatal]
  - Haematocrit decreased [Fatal]
  - White blood cell count increased [Fatal]
  - PCO2 decreased [Fatal]
  - Acute kidney injury [Fatal]
  - Oedema peripheral [Fatal]
  - Oxygen saturation decreased [Fatal]
  - Hepatitis B core antibody positive [Fatal]
  - Completed suicide [Fatal]
  - Intentional overdose [Fatal]
  - Lymphocyte percentage decreased [Fatal]
  - Amylase increased [Fatal]
  - PO2 decreased [Fatal]

NARRATIVE: CASE EVENT DATE: 20010419
